FAERS Safety Report 16396879 (Version 1)
Quarter: 2019Q2

REPORT INFORMATION
  Report Type: Report from Study
  Country: DE (occurrence: DE)
  Receive Date: 20190606
  Receipt Date: 20190606
  Transmission Date: 20190711
  Serious: Yes (Hospitalization)
  Sender: FDA-Public Use
  Company Number: DE-ROCHE-2332114

PATIENT
  Age: 67 Year
  Sex: Male
  Weight: 76 kg

DRUGS (2)
  1. VENETOCLAX. [Suspect]
     Active Substance: VENETOCLAX
     Indication: CHRONIC LYMPHOCYTIC LEUKAEMIA
     Dosage: ON 28/MAY/2019, PATIENT RECEIVED MOST RECENT DAILY DOSE (200 MG) OF VENETOCLAX PRIOR TO SERIOUS ADVE
     Route: 065
     Dates: start: 20190514, end: 20190603
  2. RITUXIMAB. [Suspect]
     Active Substance: RITUXIMAB
     Indication: CHRONIC LYMPHOCYTIC LEUKAEMIA
     Dosage: ON 14/MAY/2019, PATIENT RECEIVED MOST RECENT DAILY DOSE (950 MG) OF RITUXIMAB PRIOR TO SERIOUS ADVER
     Route: 065
     Dates: start: 20190416, end: 20190603

REACTIONS (1)
  - Herpes zoster [Unknown]

NARRATIVE: CASE EVENT DATE: 20190603
